FAERS Safety Report 8829481 (Version 2)
Quarter: 2012Q4

REPORT INFORMATION
  Report Type: 
  Country: US (occurrence: US)
  Receive Date: 20121008
  Receipt Date: 20121010
  Transmission Date: 20130627
  Serious: No
  Sender: FDA-Public Use
  Company Number: US-BAYER-2012-102911

PATIENT
  Sex: Female

DRUGS (1)
  1. CLIMARA [Suspect]
     Dosage: 0.025 mg/d, UNK
     Route: 062
     Dates: start: 2012

REACTIONS (2)
  - Drug ineffective [Unknown]
  - Product adhesion issue [None]
